FAERS Safety Report 10242163 (Version 1)
Quarter: 2014Q2

REPORT INFORMATION
  Report Type: Spontaneous
  Country: FR (occurrence: FR)
  Receive Date: 20140617
  Receipt Date: 20140617
  Transmission Date: 20141212
  Serious: Yes (Other)
  Sender: FDA-Public Use
  Company Number: FR-ABBVIE-14P-056-1245343-00

PATIENT
  Age: 59 Year
  Sex: Female

DRUGS (4)
  1. HUMIRA [Suspect]
     Indication: ANKYLOSING SPONDYLITIS
     Dates: start: 201101
  2. LAROXYL [Concomitant]
     Indication: HERPES ZOSTER
     Route: 048
     Dates: start: 201310
  3. LYRICA [Concomitant]
     Indication: HERPES ZOSTER
     Route: 048
     Dates: start: 201310
  4. VOLTARENE [Concomitant]
     Indication: HERPES ZOSTER
     Route: 048
     Dates: start: 201310

REACTIONS (3)
  - Condition aggravated [Recovered/Resolved]
  - Neuralgia [Recovered/Resolved]
  - Herpes zoster [Recovered/Resolved]
